FAERS Safety Report 15055235 (Version 2)
Quarter: 2019Q4

REPORT INFORMATION
  Report Type: Spontaneous
  Country: US (occurrence: US)
  Receive Date: 20180622
  Receipt Date: 20191128
  Transmission Date: 20200122
  Serious: Yes (Death, Other)
  Sender: FDA-Public Use
  Company Number: PHHY2018US001290

PATIENT
  Age: 20 Year
  Sex: Female

DRUGS (4)
  1. CARBOPLATIN. [Suspect]
     Active Substance: CARBOPLATIN
     Indication: PERIPHERAL PRIMITIVE NEUROECTODERMAL TUMOUR OF SOFT TISSUE
     Dosage: 500 MG/M2, UNK
     Route: 065
  2. IFOSFAMIDE. [Suspect]
     Active Substance: IFOSFAMIDE
     Indication: PERIPHERAL PRIMITIVE NEUROECTODERMAL TUMOUR OF SOFT TISSUE
     Dosage: 9000 MG/M2, UNK
     Route: 065
  3. GRANULOCYTE COLONY STIMULATING FACTOR [Suspect]
     Active Substance: GRANULOCYTE COLONY-STIMULATING FACTOR NOS
     Indication: PRODUCT USED FOR UNKNOWN INDICATION
     Route: 065
  4. ETOPOSIDE. [Suspect]
     Active Substance: ETOPOSIDE
     Indication: PERIPHERAL PRIMITIVE NEUROECTODERMAL TUMOUR OF SOFT TISSUE
     Dosage: 500 MG/M2, UNK
     Route: 065

REACTIONS (4)
  - Product use in unapproved indication [Unknown]
  - Bone marrow failure [Unknown]
  - Recurrent cancer [Fatal]
  - Peripheral primitive neuroectodermal tumour of soft tissue [Fatal]
